FAERS Safety Report 5535393-5 (Version None)
Quarter: 2007Q4

REPORT INFORMATION
  Report Type: 
  Country: None (occurrence: None)
  Receive Date: 20071206
  Receipt Date: 20071123
  Transmission Date: 20080405
  Serious: Yes (Other)
  Sender: FDA-Public Use
  Company Number: CA-PFIZER INC-2007099269

PATIENT
  Age: 82 Year
  Sex: Male

DRUGS (3)
  1. LYRICA [Suspect]
     Indication: POST HERPETIC NEURALGIA
     Dosage: TEXT:25MG
     Route: 048
     Dates: start: 20070101, end: 20070101
  2. SPIRIVA [Concomitant]
  3. ALL OTHER THERAPEUTIC PRODUCTS [Concomitant]

REACTIONS (2)
  - CONFUSIONAL STATE [None]
  - MYOCARDIAL INFARCTION [None]
